FAERS Safety Report 6228376-3 (Version None)
Quarter: 2009Q2

REPORT INFORMATION
  Report Type: 
  Country: None (occurrence: None)
  Receive Date: 20090610
  Receipt Date: 20090610
  Transmission Date: 20091009
  Serious: Yes (Hospitalization)
  Sender: FDA-Public Use
  Company Number: None

PATIENT
  Sex: Female
  Weight: 54.4 kg

DRUGS (1)
  1. MEMANTINE HCL [Suspect]
     Dosage: 15 MG
     Dates: start: 20090530

REACTIONS (2)
  - FAECALOMA [None]
  - SMALL INTESTINAL OBSTRUCTION [None]
